FAERS Safety Report 9221963 (Version 5)
Quarter: 2013Q3

REPORT INFORMATION
  Report Type: Spontaneous
  Country: US (occurrence: US)
  Receive Date: 20130410
  Receipt Date: 20130701
  Transmission Date: 20140515
  Serious: No
  Sender: FDA-Public Use
  Company Number: US-PFIZER INC-2013108368

PATIENT
  Age: 60 Year
  Sex: Male

DRUGS (1)
  1. INLYTA [Suspect]
     Indication: RENAL CANCER
     Dosage: 15 MG, TWO TABLETS IN AM AND ONE TAB PM
     Dates: start: 20121231

REACTIONS (3)
  - Thinking abnormal [Unknown]
  - Blister [Unknown]
  - Amnesia [Unknown]
